FAERS Safety Report 7901106-2 (Version None)
Quarter: 2011Q4

REPORT INFORMATION
  Report Type: 
  Country: None (occurrence: None)
  Receive Date: 20111108
  Receipt Date: 20111103
  Transmission Date: 20120403
  Serious: Yes (Hospitalization)
  Sender: FDA-Public Use
  Company Number: US-SANOFI-AVENTIS-2011SA062765

PATIENT
  Age: 86 Year
  Sex: Male
  Weight: 141.52 kg

DRUGS (7)
  1. SOLOSTAR [Suspect]
     Indication: TYPE 2 DIABETES MELLITUS
     Dates: start: 20110501
  2. LANTUS [Suspect]
     Indication: TYPE 2 DIABETES MELLITUS
     Dosage: DOSE:10 UNIT(S)
     Route: 058
     Dates: start: 20110501
  3. DIURETICS [Concomitant]
  4. METOPROLOL [Concomitant]
     Dosage: DOSE:.125 UNIT(S)
  5. IRON [Concomitant]
  6. ALL OTHER THERAPEUTIC PRODUCTS [Concomitant]
  7. THYROID TAB [Concomitant]

REACTIONS (1)
  - HAEMORRHAGE [None]
